FAERS Safety Report 11382245 (Version 1)
Quarter: 2015Q3

REPORT INFORMATION
  Report Type: Spontaneous
  Country: US (occurrence: US)
  Receive Date: 20150811
  Receipt Date: 20150811
  Transmission Date: 20151125
  Serious: Yes (Other)
  Sender: FDA-Public Use
  Company Number: US-ELI_LILLY_AND_COMPANY-US201003005244

PATIENT
  Sex: Male

DRUGS (3)
  1. CRESTOR /01588602/ [Concomitant]
     Dosage: 20 MG, DAILY (1/D)
  2. CIALIS [Suspect]
     Active Substance: TADALAFIL
     Indication: ERECTILE DYSFUNCTION
     Dosage: 20 MG, UNKNOWN
  3. LOPID [Concomitant]
     Active Substance: GEMFIBROZIL
     Dosage: 100 MG, DAILY (1/D)

REACTIONS (3)
  - Urethral pain [Not Recovered/Not Resolved]
  - Priapism [Recovered/Resolved]
  - Intentional overdose [Recovered/Resolved]

NARRATIVE: CASE EVENT DATE: 2010
